FAERS Safety Report 7225360-8 (Version None)
Quarter: 2011Q1

REPORT INFORMATION
  Report Type: 
  Country: None (occurrence: None)
  Receive Date: 20110113
  Receipt Date: 20100129
  Transmission Date: 20110831
  Serious: Yes (Death, Other)
  Sender: FDA-Public Use
  Company Number: GB-NAPPMUNDI-GBR-2010-0006057

PATIENT
  Sex: Female
  Weight: 71 kg

DRUGS (19)
  1. ALENDRONIC ACID [Concomitant]
     Dosage: 70 MG, UNK
  2. PARACETAMOL [Concomitant]
     Dosage: 500 MG, UNK
  3. SYMBICORT [Concomitant]
     Dosage: 200/6
     Route: 055
  4. PREDNISOLONE [Concomitant]
     Dosage: 5 MG, UNK
  5. RAMIPRIL [Concomitant]
     Dosage: 2.5 MG, UNK
  6. CLARITHROMYCIN [Concomitant]
     Dosage: 250 MG, UNK
  7. FORTISIP [Concomitant]
     Dosage: 200 ML, UNK
  8. GABAPENTIN [Concomitant]
     Dosage: 600 MG, UNK
  9. OXYCONTIN [Suspect]
     Indication: PRODUCT USED FOR UNKNOWN INDICATION
     Dosage: 10 MG, UNK
     Route: 048
  10. CHLORPHENIRAMINE MALEATE [Concomitant]
     Dosage: 4 MG, UNK
     Route: 065
  11. NEFOPAM HYDROCHLORIDE [Concomitant]
     Dosage: 30 MG, UNK
  12. MIRTAZAPINE A [Concomitant]
     Dosage: 30 MG, UNK
  13. VALPROATE SODIUM [Concomitant]
     Dosage: 200 MG, UNK
  14. MOVICOL                            /01625101/ [Concomitant]
     Dosage: 13.8 MG, UNK
  15. FOLIC ACID [Concomitant]
     Dosage: 5 MG, UNK
  16. ADCAL D3 [Concomitant]
     Dosage: UNK TABLET, UNK
  17. OMEPRAZOLE [Concomitant]
     Dosage: 20 MG, UNK
  18. OXYCONTIN [Suspect]
     Dosage: 40 MG, UNK
  19. OXYCONTIN [Suspect]
     Dosage: 30 MG, UNK

REACTIONS (5)
  - CARDIOMYOPATHY [None]
  - DECREASED APPETITE [None]
  - TOXICITY TO VARIOUS AGENTS [None]
  - DEHYDRATION [None]
  - URINARY TRACT INFECTION [None]
